FAERS Safety Report 9399950 (Version 2)
Quarter: 2013Q3

REPORT INFORMATION
  Report Type: Spontaneous
  Country: US (occurrence: US)
  Receive Date: 20130715
  Receipt Date: 20130822
  Transmission Date: 20140515
  Serious: Yes (Other)
  Sender: FDA-Public Use
  Company Number: US-PFIZER INC-2013204595

PATIENT
  Sex: Male

DRUGS (3)
  1. NEURONTIN [Suspect]
     Dosage: UNK
  2. NEURONTIN [Suspect]
     Dosage: UNK, WITH INCREASED DOSAGE
  3. CELEBREX [Suspect]
     Dosage: UNK

REACTIONS (5)
  - Fibromyalgia [Unknown]
  - Amnesia [Unknown]
  - Asthma [Unknown]
  - Chronic obstructive pulmonary disease [Unknown]
  - Drug ineffective [Unknown]
